FAERS Safety Report 8045466-3 (Version None)
Quarter: 2012Q1

REPORT INFORMATION
  Report Type: 
  Country: None (occurrence: None)
  Receive Date: 20120113
  Receipt Date: 20111229
  Transmission Date: 20120608
  Serious: Yes (Death, Hospitalization)
  Sender: FDA-Public Use
  Company Number: FR-UCBSA-031481

PATIENT
  Age: 74 Year
  Sex: Male

DRUGS (10)
  1. NEUPRO [Suspect]
     Route: 062
     Dates: start: 20110101, end: 20110101
  2. RISPERDAL [Suspect]
     Indication: AGITATION
     Dosage: AT NIGHT
     Route: 048
     Dates: start: 20110405, end: 20110412
  3. MADOPAR [Concomitant]
     Indication: PARKINSON'S DISEASE
     Dosage: 125 MG 1/2 TABLET
     Route: 048
  4. TANAKAN [Concomitant]
     Route: 048
  5. NEUPRO [Suspect]
     Route: 062
     Dates: start: 20110101, end: 20110412
  6. SINEMET [Concomitant]
     Indication: PARKINSON'S DISEASE
     Dosage: 200 MG/50 MG, 6 TABLETS DAILY
     Route: 048
     Dates: start: 20091213
  7. LEPTICUR [Suspect]
     Dosage: 2 TABLETS DAILY
     Route: 048
     Dates: start: 20030513
  8. TOCO [Concomitant]
     Route: 048
  9. NEUPRO [Suspect]
     Indication: PARKINSON'S DISEASE
     Route: 062
     Dates: start: 20110311, end: 20110101
  10. LORAZEPAM [Concomitant]
     Route: 048

REACTIONS (9)
  - MALAISE [None]
  - UNEVALUABLE EVENT [None]
  - FALL [None]
  - URINARY INCONTINENCE [None]
  - BRADYPHRENIA [None]
  - COMA [None]
  - DYSARTHRIA [None]
  - EPILEPSY [None]
  - SOMNOLENCE [None]
